FAERS Safety Report 25551180 (Version 1)
Quarter: 2025Q3

REPORT INFORMATION
  Report Type: Spontaneous
  Country: US (occurrence: US)
  Receive Date: 20250714
  Receipt Date: 20250714
  Transmission Date: 20251020
  Serious: No
  Sender: IPSEN BIOPHARMACEUTICALS, INC.
  Company Number: US-IPSEN Group, Research and Development-2025-16417

PATIENT
  Age: 2 Year
  Sex: Female
  Weight: 12.70 kg

DRUGS (5)
  1. TAZVERIK [Suspect]
     Active Substance: TAZEMETOSTAT HYDROBROMIDE
     Indication: Soft tissue sarcoma
     Dates: start: 20250114
  2. Xarelto Oral Suspension [Concomitant]
  3. Sulfamethoxazole- Trimethoprim [Concomitant]
  4. Senna Oral Syrup [Concomitant]
  5. Sevelamer Carbonate Oral Packet [Concomitant]

REACTIONS (2)
  - Off label use [Unknown]
  - Vitamin D decreased [Unknown]

NARRATIVE: CASE EVENT DATE: 20250114
